FAERS Safety Report 8985402 (Version 1)
Quarter: 2012Q4

REPORT INFORMATION
  Report Type: 
  Country: BR (occurrence: BR)
  Receive Date: 20121226
  Receipt Date: 20121226
  Transmission Date: 20130627
  Serious: Yes (Other)
  Sender: FDA-Public Use
  Company Number: BR-PFIZER INC-2012324646

PATIENT
  Age: 55 Year
  Sex: Female

DRUGS (2)
  1. LYRICA [Suspect]
     Indication: FIBROMYALGIA
     Dosage: 75 mg (one capsule), 1x/day
     Route: 048
     Dates: start: 2009
  2. LYRICA [Suspect]
     Dosage: UNK
     Dates: start: 201209

REACTIONS (13)
  - Intervertebral disc protrusion [Unknown]
  - Muscle spasms [Unknown]
  - Fibrosis [Unknown]
  - Nerve compression [Unknown]
  - Paraesthesia [Unknown]
  - Insomnia [Not Recovered/Not Resolved]
  - Dizziness [Unknown]
  - Pallor [Unknown]
  - Retching [Unknown]
  - Gastric disorder [Unknown]
  - Pain [Unknown]
  - Feeling abnormal [Unknown]
  - Nausea [Not Recovered/Not Resolved]
